FAERS Safety Report 6734636-X (Version None)
Quarter: 2010Q2

REPORT INFORMATION
  Report Type: 
  Country: None (occurrence: None)
  Receive Date: 20100519
  Receipt Date: 20100507
  Transmission Date: 20101027
  Serious: Yes (Other)
  Sender: FDA-Public Use
  Company Number: 8053066

PATIENT
  Age: 56 Year
  Sex: Female
  Weight: 88.4 kg

DRUGS (2)
  1. KEPPRA [Suspect]
     Indication: CONVULSION
     Dosage: 500 MG BID ORAL
     Route: 048
     Dates: start: 20090801, end: 20100414
  2. FOLIC ACID [Concomitant]

REACTIONS (5)
  - CATECHOLAMINES URINE INCREASED [None]
  - CREATINE URINE INCREASED [None]
  - METANEPHRINE URINE INCREASED [None]
  - NORMETANEPHRINE URINE INCREASED [None]
  - VANILLYL MANDELIC ACID URINE INCREASED [None]
